FAERS Safety Report 8738965 (Version 10)
Quarter: 2014Q1

REPORT INFORMATION
  Report Type: Report from Study
  Country: US (occurrence: US)
  Receive Date: 20120823
  Receipt Date: 20140219
  Transmission Date: 20141002
  Serious: Yes (Other)
  Sender: FDA-Public Use
  Company Number: PHEH2012US016326

PATIENT
  Age: 28 Year
  Sex: Female
  Weight: 49.89 kg

DRUGS (21)
  1. GILENYA [Suspect]
     Indication: RELAPSING-REMITTING MULTIPLE SCLEROSIS
     Dosage: 0.5 MG, QD
     Route: 048
     Dates: start: 20120121, end: 20120817
  2. GILENYA [Suspect]
     Dosage: 0.5 MG, QD
     Route: 048
     Dates: start: 20130403
  3. BACLOFEN [Concomitant]
     Dosage: 10 MG, UNK
     Route: 048
     Dates: start: 201203, end: 20120817
  4. POLYETHYLENE GLYCOL [Concomitant]
     Route: 048
  5. NEURONTIN [Concomitant]
     Dosage: 400 MG, TID
     Route: 048
     Dates: start: 200906, end: 20120817
  6. PAXIL [Concomitant]
     Indication: DEPRESSION
     Dosage: 30 MG, QD
     Route: 048
  7. VALPROIC ACID [Concomitant]
     Indication: BIPOLAR DISORDER
     Dosage: 750 MG, QD
     Route: 048
  8. ZOLOFT [Concomitant]
     Indication: DEPRESSION
     Dosage: 15 MG, QD
     Route: 048
  9. ZOLOFT [Concomitant]
     Dosage: 50 MG, UNK
  10. ORTHO EVRA [Concomitant]
  11. ZYRTEC [Concomitant]
     Dosage: 10 MG, UNK
  12. DEPAKOTE [Concomitant]
     Dosage: 500 MG, UNK
  13. GABAPENTIN [Concomitant]
     Dosage: 600 MG, UNK
     Dates: start: 200906, end: 20120817
  14. GABAPENTIN [Concomitant]
     Dates: start: 20130404
  15. ADVAIR DISKUS [Concomitant]
  16. FISH OIL [Concomitant]
  17. PROAIR HFA [Concomitant]
  18. CALCIUM [Concomitant]
  19. IRON [Concomitant]
     Dosage: 50 MG, UNK
  20. PRENATAL [Concomitant]
  21. ADVIL [Concomitant]

REACTIONS (4)
  - JC virus test positive [Not Recovered/Not Resolved]
  - Umbilical cord around neck [Recovered/Resolved]
  - Normal newborn [Unknown]
  - Exposure during pregnancy [Unknown]
